FAERS Safety Report 13202926 (Version 2)
Quarter: 2017Q2

REPORT INFORMATION
  Report Type: Spontaneous
  Country: US (occurrence: US)
  Receive Date: 20170209
  Receipt Date: 20170425
  Transmission Date: 20170830
  Serious: Yes (Hospitalization, Other)
  Sender: FDA-Public Use
  Company Number: US-AMGEN-USASP2017019631

PATIENT
  Age: 59 Year
  Sex: Male

DRUGS (1)
  1. KYPROLIS [Suspect]
     Active Substance: CARFILZOMIB
     Indication: PLASMA CELL MYELOMA
     Dosage: 70 MG, QWK
     Route: 065

REACTIONS (8)
  - Respiratory disorder [Unknown]
  - Renal failure [Unknown]
  - Cough [Unknown]
  - Off label use [Unknown]
  - Platelet count decreased [Unknown]
  - Pyrexia [Unknown]
  - Microangiopathy [Unknown]
  - Influenza [Unknown]
